FAERS Safety Report 8306460-8 (Version None)
Quarter: 2012Q2

REPORT INFORMATION
  Report Type: 
  Country: None (occurrence: None)
  Receive Date: 20120424
  Receipt Date: 20120417
  Transmission Date: 20120825
  Serious: Yes (Other)
  Sender: FDA-Public Use
  Company Number: US-AMGEN-USASP2012021475

PATIENT
  Age: 96 Year
  Sex: Female

DRUGS (24)
  1. PROLIA [Suspect]
     Indication: OSTEOPOROSIS POSTMENOPAUSAL
     Dosage: 60 MG, Q6MO
     Dates: start: 20100805
  2. ATIVAN [Concomitant]
     Dosage: UNK MG, UNK
  3. MULTIVITAMIN                       /00097801/ [Concomitant]
  4. ZIAC [Concomitant]
  5. CARAFATE [Concomitant]
  6. ASPIRIN [Concomitant]
     Dosage: UNK
  7. EYEVITE [Concomitant]
     Dosage: UNK
  8. CITRACAL                           /00751520/ [Concomitant]
     Dosage: UNK
  9. TYLENOL W/ CODEINE NO. 3 [Concomitant]
  10. MULTI-VITAMIN [Concomitant]
  11. LASIX [Concomitant]
     Dosage: UNK MG, UNK
  12. ATIVAN [Concomitant]
  13. FOLBIC [Concomitant]
     Dosage: UNK
  14. LIPITOR [Concomitant]
  15. FOBIC [Concomitant]
  16. LIPITOR [Concomitant]
     Dosage: UNK MG, UNK
  17. CARAFATE [Concomitant]
     Dosage: 012 ML, UNK
  18. SYNTHROID [Concomitant]
  19. SYNTHROID [Concomitant]
     Dosage: 004 MUG, UNK
  20. TYLENOL (CAPLET) [Concomitant]
  21. ZIAC [Concomitant]
     Dosage: UNK MG, UNK
  22. ENTERIC COATED BABY ASPIRN [Concomitant]
  23. CITRACAL [Concomitant]
  24. EYE VITE [Concomitant]

REACTIONS (1)
  - SPINAL COMPRESSION FRACTURE [None]
